FAERS Safety Report 9118349 (Version 1)
Quarter: 2013Q1

REPORT INFORMATION
  Report Type: Spontaneous
  Country: US (occurrence: None)
  Receive Date: 20130221
  Receipt Date: 20130221
  Transmission Date: 20140127
  Serious: Yes (Hospitalization)
  Sender: FDA-Public Use
  Company Number: None

PATIENT
  Age: 68 Year
  Sex: Male
  Weight: 79.7 kg

DRUGS (2)
  1. CLOZAPINE (CLOZARIL) [Suspect]
     Route: 048
  2. RISPERIDONE [Suspect]
     Dosage: 50 MG, OTHER, IM
     Route: 030
     Dates: start: 20050902

REACTIONS (2)
  - Hyperglycaemia [None]
  - Diabetes mellitus [None]
